FAERS Safety Report 8024392-X (Version None)
Quarter: 2011Q4

REPORT INFORMATION
  Report Type: 
  Country: None (occurrence: None)
  Receive Date: 20111130
  Receipt Date: 20110811
  Transmission Date: 20120403
  Serious: Yes (Other)
  Sender: FDA-Public Use
  Company Number: 333628

PATIENT
  Age: 37 Year
  Sex: Female
  Weight: 123.4 kg

DRUGS (5)
  1. VICTOZA (LIRAGLUTIDE) SOLUTION [Concomitant]
  2. NOVOLOG [Suspect]
     Dosage: 40 U, 4-5 TIMES A DAY, SUBCUTANEOUS
     Route: 058
     Dates: start: 20110501
  3. JANUVIA [Concomitant]
  4. NOVOLOG [Suspect]
     Indication: TYPE 2 DIABETES MELLITUS
     Dosage: 40 U, 4-5 TIMES A DAY, SUBCUTANEOUS
     Route: 058
     Dates: start: 20110501
  5. LANTUS [Concomitant]

REACTIONS (2)
  - BLOOD GLUCOSE INCREASED [None]
  - DEVICE MALFUNCTION [None]
